FAERS Safety Report 7185984-3 (Version None)
Quarter: 2010Q4

REPORT INFORMATION
  Report Type: 
  Country: None (occurrence: None)
  Receive Date: 20101222
  Receipt Date: 20101215
  Transmission Date: 20110411
  Serious: Yes (Death)
  Sender: FDA-Public Use
  Company Number: IN-BAXTER-2010BH030363

PATIENT
  Age: 55 Year
  Sex: Male

DRUGS (1)
  1. ALBUMIN (HUMAN) [Suspect]
     Indication: ASCITES
     Route: 042
     Dates: start: 20101211, end: 20101211

REACTIONS (1)
  - SEPSIS [None]
